FAERS Safety Report 4860504-4 (Version None)
Quarter: 2005Q4

REPORT INFORMATION
  Report Type: 
  Country: None (occurrence: None)
  Receive Date: 20051219
  Receipt Date: 20051207
  Transmission Date: 20060501
  Serious: Yes (Hospitalization)
  Sender: FDA-Public Use
  Company Number: IN-NOVOPROD-249275

PATIENT
  Age: 60 Year
  Sex: Female

DRUGS (1)
  1. HUMAN MIXTARD 30 [Suspect]
     Indication: DIABETES MELLITUS

REACTIONS (2)
  - CARDIAC FAILURE ACUTE [None]
  - HYPERGLYCAEMIA [None]
